FAERS Safety Report 7280678-8 (Version None)
Quarter: 2011Q1

REPORT INFORMATION
  Report Type: 
  Country: None (occurrence: None)
  Receive Date: 20110208
  Receipt Date: 20110131
  Transmission Date: 20110831
  Serious: Yes (Other)
  Sender: FDA-Public Use
  Company Number: A0911271A

PATIENT
  Sex: Female

DRUGS (2)
  1. TYKERB [Suspect]
     Dosage: 1250MG PER DAY
     Route: 048
     Dates: start: 20100824
  2. XELODA [Suspect]

REACTIONS (5)
  - FATIGUE [None]
  - BONE NEOPLASM [None]
  - ILL-DEFINED DISORDER [None]
  - SKIN CHAPPED [None]
  - NAIL DISORDER [None]
